FAERS Safety Report 7267869-7 (Version None)
Quarter: 2011Q1

REPORT INFORMATION
  Report Type: 
  Country: None (occurrence: None)
  Receive Date: 20110201
  Receipt Date: 20110121
  Transmission Date: 20110831
  Serious: Yes (Congenital Anomaly)
  Sender: FDA-Public Use
  Company Number: DK-US-EMD SERONO, INC.-7037439

PATIENT

DRUGS (1)
  1. PERGOTIME [Suspect]
     Indication: INFERTILITY
     Route: 064
     Dates: start: 20100511, end: 20101116

REACTIONS (3)
  - CONGENITAL CARDIOVASCULAR ANOMALY [None]
  - PULMONARY ARTERY ATRESIA [None]
  - MATERNAL DRUGS AFFECTING FOETUS [None]
